FAERS Safety Report 16180266 (Version 2)
Quarter: 2019Q3

REPORT INFORMATION
  Report Type: Report from Study
  Country: CO (occurrence: CO)
  Receive Date: 20190410
  Receipt Date: 20190805
  Transmission Date: 20191004
  Serious: Yes (Other)
  Sender: FDA-Public Use
  Company Number: CO-JNJFOC-20190317884

PATIENT
  Age: 60 Year
  Sex: Female
  Weight: 78 kg

DRUGS (3)
  1. STELARA [Suspect]
     Active Substance: USTEKINUMAB
     Route: 058
     Dates: start: 20190210, end: 20190210
  2. STELARA [Suspect]
     Active Substance: USTEKINUMAB
     Indication: PSORIASIS
     Route: 058
     Dates: start: 20190110, end: 20190110
  3. STELARA [Suspect]
     Active Substance: USTEKINUMAB
     Route: 058
     Dates: start: 20190516

REACTIONS (14)
  - Fall [Unknown]
  - Dizziness [Unknown]
  - Hypersensitivity [Unknown]
  - Pyrexia [Not Recovered/Not Resolved]
  - Skin abrasion [Unknown]
  - Malaise [Not Recovered/Not Resolved]
  - Influenza like illness [Not Recovered/Not Resolved]
  - Cough [Unknown]
  - Herpes simplex [Recovered/Resolved]
  - Cyst [Not Recovered/Not Resolved]
  - Headache [Unknown]
  - Feeling hot [Unknown]
  - Alopecia [Unknown]
  - Insomnia [Not Recovered/Not Resolved]

NARRATIVE: CASE EVENT DATE: 201902
